FAERS Safety Report 7546060-0 (Version None)
Quarter: 2011Q2

REPORT INFORMATION
  Report Type: 
  Country: None (occurrence: None)
  Receive Date: 20110614
  Receipt Date: 20110609
  Transmission Date: 20111010
  Serious: Yes (Death)
  Sender: FDA-Public Use
  Company Number: PHHY2011US34800

PATIENT
  Sex: Male

DRUGS (2)
  1. TASIGNA [Suspect]
     Indication: NEOPLASM MALIGNANT
     Dosage: 400 MG, BID
     Route: 048
     Dates: start: 20110119
  2. SYNTHROID [Concomitant]

REACTIONS (4)
  - EYE DISORDER [None]
  - MALAISE [None]
  - CARCINOID TUMOUR OF THE SMALL BOWEL [None]
  - DIARRHOEA [None]
